FAERS Safety Report 9258775 (Version 1)
Quarter: 2013Q2

REPORT INFORMATION
  Report Type: Spontaneous
  Country: US (occurrence: US)
  Receive Date: 20130426
  Receipt Date: 20130426
  Transmission Date: 20140414
  Serious: Yes (Other)
  Sender: FDA-Public Use
  Company Number: US-BAYER-2013-050687

PATIENT
  Sex: Female

DRUGS (8)
  1. BETASERON [Suspect]
     Indication: MULTIPLE SCLEROSIS
     Dosage: UNK
     Dates: start: 2005, end: 2007
  2. REBIF [Concomitant]
  3. GABAPENTIN [Concomitant]
  4. REQUIP [Concomitant]
  5. MULTIVITAMIN [Concomitant]
  6. NIACIN [Concomitant]
  7. FISH OIL [Concomitant]
  8. EVENING PRIMROSE OIL [Concomitant]

REACTIONS (1)
  - Skin disorder [Unknown]
